FAERS Safety Report 5919457-X (Version None)
Quarter: 2008Q4

REPORT INFORMATION
  Report Type: 
  Country: None (occurrence: None)
  Receive Date: 20081014
  Receipt Date: 20081014
  Transmission Date: 20090506
  Serious: No
  Sender: FDA-Public Use
  Company Number: None

PATIENT
  Age: 5 Year
  Sex: Male
  Weight: 20.4119 kg

DRUGS (4)
  1. FLOVENT [Suspect]
     Indication: ASTHMA
     Dosage: 2 PUFFS 2X/DAY INHAL
     Route: 055
     Dates: start: 20070601, end: 20070901
  2. FLOVENT [Suspect]
     Indication: PNEUMONIA
     Dosage: 2 PUFFS 2X/DAY INHAL
     Route: 055
     Dates: start: 20070601, end: 20070901
  3. FLOVENT [Suspect]
     Indication: ASTHMA
     Dosage: 2 PUFFS 2X/DAY INHAL
     Route: 055
     Dates: start: 20080929, end: 20081006
  4. FLOVENT [Suspect]
     Indication: PNEUMONIA
     Dosage: 2 PUFFS 2X/DAY INHAL
     Route: 055
     Dates: start: 20080929, end: 20081006

REACTIONS (6)
  - ABNORMAL BEHAVIOUR [None]
  - AGGRESSION [None]
  - ANGER [None]
  - CRYING [None]
  - MOOD ALTERED [None]
  - PNEUMONIA [None]
